FAERS Safety Report 15310163 (Version 1)
Quarter: 2018Q3

REPORT INFORMATION
  Report Type: Spontaneous
  Country: US (occurrence: US)
  Receive Date: 20180823
  Receipt Date: 20180823
  Transmission Date: 20181010
  Serious: No
  Sender: FDA-Public Use
  Company Number: US-PFIZER INC-2018336401

PATIENT
  Sex: Female

DRUGS (1)
  1. CORTEF [Suspect]
     Active Substance: HYDROCORTISONE
     Indication: ADDISON^S DISEASE
     Dosage: 10MG TABLETS IN THE MORNING AND 5MG TABLET AT DINNER BY MOUTH
     Route: 048

REACTIONS (2)
  - Product use in unapproved indication [Unknown]
  - Hypertension [Unknown]
